FAERS Safety Report 5033255-3 (Version None)
Quarter: 2006Q2

REPORT INFORMATION
  Report Type: 
  Country: None (occurrence: None)
  Receive Date: 20060620
  Receipt Date: 20060606
  Transmission Date: 20061013
  Serious: Yes (Hospitalization, Disabling)
  Sender: FDA-Public Use
  Company Number: 419578

PATIENT
  Age: 22 Year
  Sex: Female
  Weight: 62.1 kg

DRUGS (11)
  1. ACCUTANE [Suspect]
     Indication: ACNE
     Dosage: ORAL
     Route: 048
     Dates: start: 19840715, end: 19841215
  2. MINOCIN (MINOCYCLINE HYDROCHLORIDE) [Concomitant]
  3. ACHROMYCIN (TETRACYCLINE HYDROCHLORIDE) [Concomitant]
  4. BENZAGEL (BENZOYL PEROXIDE) [Concomitant]
  5. TRIAMCINOLONE [Concomitant]
  6. SUMYCIN (TETRACYCLINE HYDROCHLORIDE) [Concomitant]
  7. DAPSONE [Concomitant]
  8. ERYTHROMYCIN [Concomitant]
  9. SULFUR [Concomitant]
  10. CLEOCIN (CLINDAMYCIN) [Concomitant]
  11. TOPICYCLINE (TETRACYCLINE HYDROCHLORIDE) [Concomitant]

REACTIONS (52)
  - ABDOMINAL WALL ABSCESS [None]
  - ABSCESS [None]
  - ANAEMIA [None]
  - BACK PAIN [None]
  - BASAL CELL CARCINOMA [None]
  - CALCULUS URETERIC [None]
  - CHEST PAIN [None]
  - CHRONIC FATIGUE SYNDROME [None]
  - COLITIS ULCERATIVE [None]
  - CROHN'S DISEASE [None]
  - CYST [None]
  - DECREASED APPETITE [None]
  - DEHYDRATION [None]
  - DEPRESSION [None]
  - DUODENAL ULCER [None]
  - DUODENITIS [None]
  - DYSPEPSIA [None]
  - ECZEMA [None]
  - ENTEROCUTANEOUS FISTULA [None]
  - EPISTAXIS [None]
  - EROSIVE DUODENITIS [None]
  - FISTULA [None]
  - GASTRIC ATONY [None]
  - GASTRIC DISORDER [None]
  - GASTROINTESTINAL DISORDER [None]
  - GASTROINTESTINAL NECROSIS [None]
  - HERNIA [None]
  - HERNIA REPAIR [None]
  - IMPAIRED GASTRIC EMPTYING [None]
  - INFLAMMATORY BOWEL DISEASE [None]
  - INFLUENZA [None]
  - INTESTINAL HAEMORRHAGE [None]
  - INTESTINAL OBSTRUCTION [None]
  - IRON DEFICIENCY ANAEMIA [None]
  - IRRITABLE BOWEL SYNDROME [None]
  - JOINT SPRAIN [None]
  - MELANOCYTIC NAEVUS [None]
  - MUSCLE SPASMS [None]
  - MUSCULOSKELETAL DISORDER [None]
  - NECROSIS [None]
  - OBSTRUCTION GASTRIC [None]
  - PANCREATITIS [None]
  - PELVIC ABSCESS [None]
  - PEPTIC ULCER [None]
  - PHARYNGOLARYNGEAL PAIN [None]
  - PURULENT DISCHARGE [None]
  - SACROILIITIS [None]
  - SEROSITIS [None]
  - TRANSFUSION REACTION [None]
  - URETERIC OBSTRUCTION [None]
  - VITAMIN B12 DEFICIENCY [None]
  - WEIGHT DECREASED [None]
